FAERS Safety Report 25073936 (Version 1)
Quarter: 2025Q1

REPORT INFORMATION
  Report Type: Spontaneous
  Country: US (occurrence: None)
  Receive Date: 20250312
  Receipt Date: 20250312
  Transmission Date: 20250408
  Serious: Yes (Hospitalization)
  Sender: FDA-CTU
  Company Number: None

PATIENT
  Age: 65 Year
  Sex: Female

DRUGS (17)
  1. SIROLIMUS [Suspect]
     Active Substance: SIROLIMUS
     Indication: Liver transplant
     Dosage: FREQUENCY : DAILY;?
     Route: 048
  2. Trelegy Ellipta 100-62.5 mg inhaler [Concomitant]
     Dates: start: 20220119
  3. AMOXICILLIN\CLAVULANIC ACID [Concomitant]
     Active Substance: AMOXICILLIN\CLAVULANIC ACID
     Dates: start: 20250224
  4. AZITHROMYCIN ANHYDROUS [Concomitant]
     Active Substance: AZITHROMYCIN ANHYDROUS
     Dates: start: 20241121
  5. TRAZODONE [Concomitant]
     Active Substance: TRAZODONE HYDROCHLORIDE
     Dates: start: 20230809
  6. SERTRALINE HYDROCHLORIDE [Concomitant]
     Active Substance: SERTRALINE HYDROCHLORIDE
     Dates: start: 20220831
  7. ursodiol 300 mg capsule [Concomitant]
     Dates: start: 20230703
  8. PREDNISONE [Concomitant]
     Active Substance: PREDNISONE
     Dates: start: 20230703
  9. ATORVASTATIN [Concomitant]
     Active Substance: ATORVASTATIN
     Dates: start: 20220226
  10. labetalol 200 mg tablet [Concomitant]
     Dates: start: 20230703
  11. AMLODIPINE [Concomitant]
     Active Substance: AMLODIPINE BESYLATE
     Dates: start: 20220521
  12. Retacrit 10,000 unit injection [Concomitant]
     Dates: start: 20240226
  13. OMEPRAZOLE [Concomitant]
     Active Substance: OMEPRAZOLE
     Dates: start: 20230703
  14. ALBUTEROL [Concomitant]
     Active Substance: ALBUTEROL
     Dates: start: 20230320
  15. tacrolimius 1mg capsule [Concomitant]
     Dates: start: 20230703, end: 20231108
  16. mycophenolic 180 mg DR tablet [Concomitant]
     Dates: start: 20230815, end: 20230825
  17. mycophenolate 250 mg capsule [Concomitant]
     Dates: start: 20230703, end: 20230727

REACTIONS (3)
  - Liver transplant [None]
  - Bronchial secretion retention [None]
  - Intentional dose omission [None]

NARRATIVE: CASE EVENT DATE: 20250310
